FAERS Safety Report 10198219 (Version 1)
Quarter: 2014Q2

REPORT INFORMATION
  Report Type: Spontaneous
  Country: DE (occurrence: DE)
  Receive Date: 20140527
  Receipt Date: 20140527
  Transmission Date: 20141212
  Serious: Yes (Other)
  Sender: FDA-Public Use
  Company Number: DE-BAYER-2014-075759

PATIENT
  Sex: Female

DRUGS (2)
  1. STIVARGA [Suspect]
     Dosage: DAILY DOSE 160 MG
  2. STIVARGA [Suspect]
     Dosage: DAILY DOSE 120 MG

REACTIONS (7)
  - Diarrhoea [None]
  - Intestinal haemorrhage [Recovering/Resolving]
  - Weight decreased [None]
  - Inflammation [None]
  - Dry skin [Not Recovered/Not Resolved]
  - Muscle spasms [Not Recovered/Not Resolved]
  - Arthritis [Not Recovered/Not Resolved]
